FAERS Safety Report 16405193 (Version 2)
Quarter: 2019Q3

REPORT INFORMATION
  Report Type: Report from Study
  Country: IT (occurrence: IT)
  Receive Date: 20190607
  Receipt Date: 20190717
  Transmission Date: 20191004
  Serious: Yes (Other)
  Sender: FDA-Public Use
  Company Number: IT-PFIZER INC-2019237908

PATIENT
  Sex: Male

DRUGS (4)
  1. CYCLOSPORINE A [Concomitant]
     Active Substance: CYCLOSPORINE
     Indication: IMMUNOSUPPRESSANT DRUG THERAPY
     Dosage: UNK
  2. TACROLIMUS. [Concomitant]
     Active Substance: TACROLIMUS
     Indication: IMMUNOSUPPRESSANT DRUG THERAPY
     Dosage: UNK
  3. SIROLIMUS. [Suspect]
     Active Substance: SIROLIMUS
     Indication: IPEX SYNDROME
     Dosage: 4 MG, DAILY (TROUGH LEVELS 8-12 NG/L))
  4. SIROLIMUS. [Suspect]
     Active Substance: SIROLIMUS
     Dosage: 4MG/M2 (MEAN TROUGH LEVELS: 12.1 NG/ML)

REACTIONS (1)
  - Pneumonia bacterial [Recovering/Resolving]
